FAERS Safety Report 9753576 (Version 2)
Quarter: 2014Q1

REPORT INFORMATION
  Report Type: Spontaneous
  Country: US (occurrence: US)
  Receive Date: 20131213
  Receipt Date: 20140102
  Transmission Date: 20141002
  Serious: No
  Sender: FDA-Public Use
  Company Number: US-009507513-1312USA004717

PATIENT
  Sex: Female
  Weight: 72.56 kg

DRUGS (3)
  1. NUVARING [Suspect]
     Indication: CONTRACEPTION
     Dosage: SINGLE RING
     Route: 067
     Dates: start: 201310, end: 2013
  2. NUVARING [Suspect]
     Dosage: UNK
     Route: 067
     Dates: start: 2013
  3. NUVARING [Suspect]
     Dosage: SAMPLE
     Route: 067

REACTIONS (3)
  - Vaginal haemorrhage [Recovered/Resolved]
  - Vaginal haemorrhage [Not Recovered/Not Resolved]
  - Nausea [Unknown]
